FAERS Safety Report 5113889-8 (Version None)
Quarter: 2006Q3

REPORT INFORMATION
  Report Type: 
  Country: None (occurrence: None)
  Receive Date: 20060925
  Receipt Date: 20060918
  Transmission Date: 20061208
  Serious: Yes (Other)
  Sender: FDA-Public Use
  Company Number: GB-ROCHE-464156

PATIENT

DRUGS (3)
  1. XENICAL [Suspect]
     Indication: DRUG USE FOR UNKNOWN INDICATION
     Route: 065
  2. REBOXETINE [Concomitant]
  3. ARIPIPRAZOLE [Concomitant]

REACTIONS (1)
  - SCHIZOPHRENIA [None]
